FAERS Safety Report 4882985-2 (Version None)
Quarter: 2006Q1

REPORT INFORMATION
  Report Type: 
  Country: None (occurrence: None)
  Receive Date: 20060112
  Receipt Date: 20060104
  Transmission Date: 20060701
  Serious: Yes (Death)
  Sender: FDA-Public Use
  Company Number: 2006-CZ-00142

PATIENT
  Age: 88 Year
  Sex: Female

DRUGS (13)
  1. CIPROFLOXACIN [Suspect]
     Indication: PSEUDOMONAS INFECTION
     Dosage: 1000 MG, 2 IN 1 D, ORAL
     Route: 048
     Dates: start: 20051112, end: 20051115
  2. TRIMETHOPRIM [Suspect]
     Dosage: 400 MG, 2 IN 1 D
     Dates: start: 20051105, end: 20051113
  3. CEFRADINE [Suspect]
     Indication: INFECTION
     Dosage: 1 G QDS, INTRAVENOUS
     Route: 042
     Dates: start: 20051106, end: 20051108
  4. AMOXICILLIN AND CLAVULANATE POTASSIUM [Suspect]
     Indication: LOWER RESPIRATORY TRACT INFECTION
     Dosage: 1.2 GM, 3 IN 1 D, INTRAVENOUS
     Route: 042
     Dates: start: 20051115, end: 20051118
  5. GENTAMICIN [Suspect]
     Indication: PSEUDOMONAS INFECTION
     Dosage: 240 MG EVERY 36 HOURS
     Dates: start: 20051115, end: 20051118
  6. ENOXAPARIN SODIUM [Concomitant]
  7. ACETAMINOPHEN W/ CODEINE [Concomitant]
  8. CARBAZOCHROME [Concomitant]
  9. ALENDRONIC ACID [Concomitant]
  10. CYCLIZINE [Concomitant]
  11. FERROUS SULFATE TAB [Concomitant]
  12. DIGOXIN [Concomitant]
  13. NULYTELY [Concomitant]

REACTIONS (3)
  - CLOSTRIDIUM COLITIS [None]
  - LOWER RESPIRATORY TRACT INFECTION [None]
  - RENAL IMPAIRMENT [None]
